FAERS Safety Report 6469880-2 (Version None)
Quarter: 2009Q4

REPORT INFORMATION
  Report Type: 
  Country: None (occurrence: None)
  Receive Date: 20091203
  Receipt Date: 20071112
  Transmission Date: 20100525
  Serious: Yes (Hospitalization)
  Sender: FDA-Public Use
  Company Number: US-ELI_LILLY_AND_COMPANY-US200710006592

PATIENT
  Sex: Female

DRUGS (10)
  1. BYETTA [Suspect]
     Indication: TYPE 2 DIABETES MELLITUS
     Dosage: 5 UG, 2/D
     Route: 058
     Dates: start: 20070801, end: 20070901
  2. BYETTA [Suspect]
     Dosage: 10 UG, 2/D
     Route: 058
     Dates: start: 20070901
  3. BYETTA [Suspect]
     Dosage: UNK, 2/D
     Route: 058
     Dates: start: 20071023, end: 20071025
  4. GLUCOPHAGE [Concomitant]
     Indication: TYPE 2 DIABETES MELLITUS
  5. DURAGESIC-100 [Concomitant]
     Indication: PAIN
     Route: 062
  6. LORAZEPAM [Concomitant]
     Indication: ANXIETY
  7. REGLAN [Concomitant]
     Indication: NAUSEA
  8. REMERON [Concomitant]
     Indication: DEPRESSION
     Dosage: 30 MG, DAILY (1/D)
     Route: 048
  9. NORCO [Concomitant]
     Indication: BREAKTHROUGH PAIN
  10. PREDNISONE [Concomitant]
     Indication: POLYMYALGIA RHEUMATICA

REACTIONS (6)
  - DIZZINESS [None]
  - HYPERGLYCAEMIA [None]
  - HYPOGLYCAEMIA [None]
  - MEDICATION ERROR [None]
  - OVERDOSE [None]
  - PULMONARY EMBOLISM [None]
